FAERS Safety Report 9181639 (Version 3)
Quarter: 2013Q2

REPORT INFORMATION
  Report Type: Spontaneous
  Country: US (occurrence: US)
  Receive Date: 20130322
  Receipt Date: 20130530
  Transmission Date: 20140414
  Serious: Yes (Death, Other)
  Sender: FDA-Public Use
  Company Number: US-ELI_LILLY_AND_COMPANY-US201303005115

PATIENT
  Age: 91 Year
  Sex: Female

DRUGS (25)
  1. FORTEO [Suspect]
     Indication: SENILE OSTEOPOROSIS
     Dosage: 20 MG, QD
     Route: 058
     Dates: start: 20130130, end: 20130313
  2. ASPIRIN [Concomitant]
     Dosage: 81 MG, QD
     Route: 048
     Dates: end: 20130325
  3. FERROUS SULFATE [Concomitant]
     Dosage: 325 MG, QD
     Route: 048
     Dates: end: 20130325
  4. LASIX [Concomitant]
     Dosage: 40 MG, QD
     Route: 048
     Dates: end: 20130325
  5. LOPRESSOR [Concomitant]
     Dosage: 50 MG, QD
     Route: 048
     Dates: end: 20130325
  6. METOPROLOL [Concomitant]
     Dosage: 25 MG, QD
     Route: 048
     Dates: end: 20130325
  7. MULTIVITAMIN [Concomitant]
     Dosage: 1 TABLET, QD
     Route: 048
     Dates: end: 20130325
  8. NITRO-DUR [Concomitant]
     Dosage: 1 PATCH, EACH MORNING, REMOVE AT BEDTIME
     Route: 062
     Dates: end: 20130325
  9. OYST-CAL [Concomitant]
     Dosage: 250 MG, EACH MORNING
     Route: 048
     Dates: end: 20130325
  10. PLAVIX [Concomitant]
     Dosage: 75 MG, QD
     Route: 048
     Dates: end: 20130325
  11. SYNTHROID [Concomitant]
     Dosage: 0.5 MG, QD
     Route: 048
     Dates: end: 20130323
  12. NEURONTIN [Concomitant]
     Dosage: 300 MG, BID
     Route: 048
     Dates: end: 20130325
  13. XANAX [Concomitant]
     Dosage: 0.25 MG, QD
     Route: 048
     Dates: end: 20130325
  14. OMEPRAZOLE [Concomitant]
     Dosage: 20 MG, AT BEDTIME
     Route: 048
     Dates: end: 20130324
  15. REMERON [Concomitant]
     Dosage: 15 MG, BEDTIME
     Route: 048
     Dates: end: 20130324
  16. ZOCOR [Concomitant]
     Dosage: 20 MG, AT BEDTIME
     Route: 048
     Dates: end: 20130324
  17. TYLENOL                            /00020001/ [Concomitant]
     Indication: PAIN
     Dosage: 650 MG, EVERY 6 HRS PRN
  18. LORTAB [Concomitant]
     Dosage: 1 TABLET, EVERY 6 HRS PRN
     Route: 048
     Dates: end: 20130321
  19. NITROSTAT [Concomitant]
     Dosage: 0.4 MG, EVERY 5 MINUTES AS NEEDED
     Route: 060
  20. PROSTAT [Concomitant]
     Dosage: 30 ML, BID FOR 30 DAYS
     Route: 048
     Dates: end: 20130313
  21. ULTRAM [Concomitant]
     Dosage: 50 MG, PRN
     Route: 048
  22. BISACODYL [Concomitant]
     Indication: CONSTIPATION
     Dosage: 2 TABLETS, PRN
     Route: 048
  23. BISACODYL [Concomitant]
     Dosage: 1 SUPPOSITORY PRN
     Route: 054
  24. MILK OF MAGNESIA [Concomitant]
     Indication: CONSTIPATION
     Dosage: 30 ML, PRN
     Route: 048
  25. CALMEX [Concomitant]
     Dosage: APPLY TO BUTTOCKS AND COCCYX, BID AND PRN
     Route: 061
     Dates: end: 20130324

REACTIONS (3)
  - Acute lymphocytic leukaemia [Fatal]
  - Failure to thrive [Fatal]
  - Pneumonia [Not Recovered/Not Resolved]
